FAERS Safety Report 21069225 (Version 1)
Quarter: 2022Q3

REPORT INFORMATION
  Report Type: Spontaneous
  Country: US (occurrence: None)
  Receive Date: 20220711
  Receipt Date: 20220711
  Transmission Date: 20221027
  Serious: Yes (Other)
  Sender: FDA-Public Use
  Company Number: None

PATIENT
  Age: 52 Year
  Sex: Female
  Weight: 65.7 kg

DRUGS (12)
  1. STELARA [Suspect]
     Active Substance: USTEKINUMAB
     Indication: Crohn^s disease
     Dosage: OTHER FREQUENCY : Q8 WEEKS;?
     Route: 058
     Dates: start: 20220112
  2. Anoro Ellipta 62.5/25 [Concomitant]
  3. BENTYL [Concomitant]
     Active Substance: DICYCLOMINE HYDROCHLORIDE
  4. butalbital/acetaminophen 50/325 [Concomitant]
  5. FOLIC ACID [Concomitant]
     Active Substance: FOLIC ACID
  6. calcium/magnesium/zinc [Concomitant]
  7. hydroxyzine pamoate 25 mg [Concomitant]
  8. LISINOPRIL [Concomitant]
     Active Substance: LISINOPRIL
  9. ONDANSETRON [Concomitant]
     Active Substance: ONDANSETRON
  10. TRAZODONE [Concomitant]
     Active Substance: TRAZODONE HYDROCHLORIDE
  11. VITAMIN D3 [Concomitant]
     Active Substance: CHOLECALCIFEROL
  12. womens 50+ multivitamin/mineral [Concomitant]

REACTIONS (3)
  - Therapeutic product effect decreased [None]
  - Abdominal pain [None]
  - Diarrhoea [None]
